FAERS Safety Report 10784467 (Version 1)
Quarter: 2015Q1

REPORT INFORMATION
  Report Type: Spontaneous
  Country: US (occurrence: None)
  Receive Date: 20150209
  Receipt Date: 20150209
  Transmission Date: 20150721
  Serious: Yes (Other)
  Sender: FDA-Public Use
  Company Number: None

PATIENT
  Age: 50 Year
  Sex: Female
  Weight: 65.77 kg

DRUGS (3)
  1. PREMARIN [Suspect]
     Active Substance: ESTROGENS, CONJUGATED
     Indication: HYSTERECTOMY
     Dosage: .625, ONCE DAILY, TAKEN BY MOUTH
     Route: 048
  2. RED RICE YEAST [Concomitant]
     Active Substance: DIETARY SUPPLEMENT
  3. FLAXSEED [Concomitant]
     Active Substance: FLAX SEED

REACTIONS (1)
  - Photosensitivity reaction [None]
